FAERS Safety Report 9004258 (Version 3)
Quarter: 2013Q3

REPORT INFORMATION
  Report Type: Spontaneous
  Country: KR (occurrence: KR)
  Receive Date: 20130109
  Receipt Date: 20130830
  Transmission Date: 20140515
  Serious: Yes (Death, Other)
  Sender: FDA-Public Use
  Company Number: KR-009507513-1301KOR002214

PATIENT
  Age: 35 Year
  Sex: Female

DRUGS (1)
  1. NOXAFIL [Suspect]
     Indication: ZYGOMYCOSIS
     Dosage: 800 MG/DAY
     Route: 048

REACTIONS (2)
  - Pneumonia bacterial [Fatal]
  - Nausea [Recovered/Resolved]
